FAERS Safety Report 24659130 (Version 3)
Quarter: 2024Q4

REPORT INFORMATION
  Report Type: Spontaneous
  Country: US (occurrence: US)
  Receive Date: 20241125
  Receipt Date: 20241219
  Transmission Date: 20250114
  Serious: Yes (Hospitalization, Other)
  Sender: BIOGEN
  Company Number: US-BIOGEN-2024BI01291139

PATIENT
  Age: 55 Year
  Sex: Female

DRUGS (1)
  1. SPINRAZA [Suspect]
     Active Substance: NUSINERSEN
     Indication: Spinal muscular atrophy
     Route: 050

REACTIONS (8)
  - Fractured sacrum [Unknown]
  - Gait disturbance [Unknown]
  - Mobility decreased [Unknown]
  - Fracture pain [Unknown]
  - Muscle strain [Unknown]
  - Blood pressure increased [Unknown]
  - Sciatic nerve injury [Unknown]
  - Fall [Recovered/Resolved]

NARRATIVE: CASE EVENT DATE: 20241119
